FAERS Safety Report 7554601-2 (Version None)
Quarter: 2011Q2

REPORT INFORMATION
  Report Type: 
  Country: None (occurrence: None)
  Receive Date: 20110617
  Receipt Date: 20110531
  Transmission Date: 20111010
  Serious: No
  Sender: FDA-Public Use
  Company Number: US-MYLANLABS-2011S1009955

PATIENT
  Age: 66 Year
  Sex: Male
  Weight: 83.1 kg

DRUGS (7)
  1. CARBIDOPA AND LEVODOPA [Suspect]
     Route: 048
     Dates: start: 20110101, end: 20110301
  2. CARBIDOPA AND LEVODOPA [Suspect]
     Route: 048
     Dates: start: 20110301
  3. EXCEDRIN (MIGRAINE) [Concomitant]
     Dosage: 250MG-250MG-65MG
  4. MELATONIN [Concomitant]
     Route: 048
  5. MIRALAX /00754501/ [Concomitant]
     Route: 048
  6. CARBIDOPA AND LEVODOPA [Suspect]
     Indication: PARKINSON'S DISEASE
     Route: 048
     Dates: start: 20110101, end: 20110301
  7. CO Q-10 [Concomitant]

REACTIONS (7)
  - DEPRESSION [None]
  - DRUG EFFECT DECREASED [None]
  - DIZZINESS [None]
  - PARKINSON'S DISEASE [None]
  - BLOOD PRESSURE INCREASED [None]
  - NAUSEA [None]
  - ANXIETY [None]
